FAERS Safety Report 11893851 (Version 1)
Quarter: 2016Q1

REPORT INFORMATION
  Report Type: Spontaneous
  Country: US (occurrence: US)
  Receive Date: 20160107
  Receipt Date: 20160107
  Transmission Date: 20160526
  Serious: No
  Sender: FDA-Public Use
  Company Number: US-009507513-1512USA010159

PATIENT
  Age: 94 Year
  Sex: Female

DRUGS (5)
  1. CELESTONE SOLUSPAN [Suspect]
     Active Substance: BETAMETHASONE ACETATE\BETAMETHASONE SODIUM PHOSPHATE
     Indication: NEURALGIA
     Dosage: THERAPY ROUTE: INJECTION
     Dates: start: 20150716, end: 20150716
  2. CATAPRES [Concomitant]
     Active Substance: CLONIDINE HYDROCHLORIDE
  3. CELESTONE SOLUSPAN [Suspect]
     Active Substance: BETAMETHASONE ACETATE\BETAMETHASONE SODIUM PHOSPHATE
     Indication: INTERVERTEBRAL DISC PROTRUSION
  4. VITAMINS (UNSPECIFIED) [Concomitant]
     Active Substance: VITAMINS
  5. OMEGA-3 MARINE TRIGLYCERIDES [Concomitant]
     Active Substance: FISH OIL

REACTIONS (3)
  - Neuralgia [Not Recovered/Not Resolved]
  - Dry skin [Not Recovered/Not Resolved]
  - Hypotonia [Not Recovered/Not Resolved]

NARRATIVE: CASE EVENT DATE: 2015
